FAERS Safety Report 13180860 (Version 1)
Quarter: 2017Q1

REPORT INFORMATION
  Report Type: Spontaneous
  Country: US (occurrence: US)
  Receive Date: 20170202
  Receipt Date: 20170202
  Transmission Date: 20170428
  Serious: No
  Sender: FDA-Public Use
  Company Number: US-SMITH AND NEPHEW, INC-2016SMT00993

PATIENT
  Age: 55 Year
  Sex: Female
  Weight: 140.59 kg

DRUGS (15)
  1. OMEPRAZOLE. [Concomitant]
     Active Substance: OMEPRAZOLE
  2. VITAMIN D [Concomitant]
     Active Substance: CHOLECALCIFEROL
  3. HYDROXYZINE [Concomitant]
     Active Substance: HYDROXYZINE HYDROCHLORIDE
  4. ELIQUIS [Concomitant]
     Active Substance: APIXABAN
  5. FUROSEMIDE. [Concomitant]
     Active Substance: FUROSEMIDE
  6. SPIRONOLACTONE. [Concomitant]
     Active Substance: SPIRONOLACTONE
  7. REGRANEX [Suspect]
     Active Substance: BECAPLERMIN
     Indication: DIABETIC ULCER
     Dosage: UNK UNK, 2X/DAY
     Route: 061
     Dates: start: 201610
  8. LISINOPRIL. [Concomitant]
     Active Substance: LISINOPRIL
  9. GABAPENTIN. [Concomitant]
     Active Substance: GABAPENTIN
  10. BUPROPION. [Concomitant]
     Active Substance: BUPROPION
  11. ATORVASTATIN [Concomitant]
     Active Substance: ATORVASTATIN
  12. METOPROLOL. [Concomitant]
     Active Substance: METOPROLOL
  13. UNSPECIFIED INSULIN [Concomitant]
     Active Substance: INSULIN NOS
     Dosage: 35 U, 1X/DAY
  14. UNSPECIFIED EYE INJECTION [Concomitant]
     Dosage: UNK, EVERY 4-5 WEEKS
  15. UNSPECIFIED INSULIN [Concomitant]
     Active Substance: INSULIN NOS
     Dosage: 55 U, 1X/DAY

REACTIONS (2)
  - Drug ineffective [Not Recovered/Not Resolved]
  - Inappropriate schedule of drug administration [Not Recovered/Not Resolved]

NARRATIVE: CASE EVENT DATE: 201610
